FAERS Safety Report 17363998 (Version 2)
Quarter: 2020Q1

REPORT INFORMATION
  Report Type: Spontaneous
  Country: CY (occurrence: CY)
  Receive Date: 20200204
  Receipt Date: 20200211
  Transmission Date: 20200409
  Serious: Yes (Death, Life-Threatening, Hospitalization)
  Sender: FDA-Public Use
  Company Number: CY-B.I. PHARMACEUTICALS,INC./RIDGEFIELD-2020-BI-005444

PATIENT
  Age: 50 Year
  Sex: Male

DRUGS (1)
  1. OFEV [Suspect]
     Active Substance: NINTEDANIB
     Indication: FIBROSIS
     Route: 048
     Dates: start: 201911, end: 201912

REACTIONS (11)
  - Productive cough [Recovered/Resolved]
  - Off label use [Recovered/Resolved]
  - Hepatotoxicity [Recovered/Resolved]
  - Respiratory syncytial virus infection [Unknown]
  - Pyrexia [Recovered/Resolved]
  - Pyrexia [Unknown]
  - Acute respiratory failure [Fatal]
  - Respiratory tract infection bacterial [Unknown]
  - Enterococcal infection [Unknown]
  - Acute respiratory failure [Recovered/Resolved]
  - Productive cough [Unknown]

NARRATIVE: CASE EVENT DATE: 201911
